FAERS Safety Report 13088930 (Version 1)
Quarter: 2017Q1

REPORT INFORMATION
  Report Type: Spontaneous
  Country: US (occurrence: US)
  Receive Date: 20170105
  Receipt Date: 20170105
  Transmission Date: 20170428
  Serious: No
  Sender: FDA-Public Use
  Company Number: None

PATIENT

DRUGS (1)
  1. PREDNISONE. [Suspect]
     Active Substance: PREDNISONE

REACTIONS (10)
  - Spinal fracture [None]
  - Musculoskeletal disorder [None]
  - Abasia [None]
  - Quality of life decreased [None]
  - Pain in extremity [None]
  - Pain in jaw [None]
  - Cardiac disorder [None]
  - Chest pain [None]
  - Hypoaesthesia oral [None]
  - Reaction to azo-dyes [None]
